FAERS Safety Report 10461099 (Version 1)
Quarter: 2014Q3

REPORT INFORMATION
  Report Type: Spontaneous
  Country: US (occurrence: US)
  Receive Date: 20140918
  Receipt Date: 20140918
  Transmission Date: 20150326
  Serious: Yes (Hospitalization, Other)
  Sender: FDA-Public Use
  Company Number: US-BAYER-2014-137631

PATIENT
  Sex: Male
  Weight: 86 kg

DRUGS (2)
  1. ALEVE [Suspect]
     Active Substance: NAPROXEN SODIUM
     Dosage: 2 DF, QD
     Route: 048
  2. INSULIN 2 [Concomitant]

REACTIONS (8)
  - Haematemesis [Recovered/Resolved]
  - Haematochezia [Unknown]
  - Weight decreased [Unknown]
  - Hypertension [Unknown]
  - Incorrect drug administration duration [None]
  - Abdominal discomfort [Unknown]
  - Colitis ulcerative [Unknown]
  - Abnormal faeces [Unknown]
